FAERS Safety Report 4703914-8 (Version None)
Quarter: 2005Q2

REPORT INFORMATION
  Report Type: 
  Country: None (occurrence: None)
  Receive Date: 20050628
  Receipt Date: 20050609
  Transmission Date: 20051028
  Serious: No
  Sender: FDA-Public Use
  Company Number: USA041286797

PATIENT
  Age: 50 Year
  Sex: Male

DRUGS (6)
  1. STRATTERA [Suspect]
     Indication: ATTENTION DEFICIT/HYPERACTIVITY DISORDER
     Dosage: 80 MG DAY
     Dates: end: 20041101
  2. PAXIL [Concomitant]
  3. DEXEDRINE [Concomitant]
  4. CLONIDINE [Concomitant]
  5. DEXEDRINE [Concomitant]
  6. SONATA [Concomitant]

REACTIONS (1)
  - ALANINE AMINOTRANSFERASE INCREASED [None]
